FAERS Safety Report 20758738 (Version 1)
Quarter: 2022Q2

REPORT INFORMATION
  Report Type: Spontaneous
  Country: US (occurrence: US)
  Receive Date: 20220427
  Receipt Date: 20220427
  Transmission Date: 20220720
  Serious: No
  Sender: FDA-Public Use
  Company Number: US-PERRIGO-21US005870

PATIENT
  Age: 74 Year
  Sex: Female

DRUGS (4)
  1. FAMOTIDINE [Suspect]
     Active Substance: FAMOTIDINE
     Indication: Off label use
     Dosage: 10 MG, QD
     Route: 048
     Dates: start: 20210424, end: 20210429
  2. AMLODIPINE BESYLATE\BENAZEPRIL HYDROCHLORIDE [Concomitant]
     Active Substance: AMLODIPINE BESYLATE\BENAZEPRIL HYDROCHLORIDE
     Indication: Hypertension
     Dosage: UNK
     Route: 065
     Dates: start: 2018
  3. LEVOTHYROXINE [Concomitant]
     Active Substance: LEVOTHYROXINE
     Indication: Hypothyroidism
     Dosage: UNK
     Route: 065
     Dates: start: 2005
  4. ASPIRIN [Concomitant]
     Active Substance: ASPIRIN
     Indication: Arthritis
     Dosage: UNK
     Route: 065
     Dates: start: 2020

REACTIONS (3)
  - Pruritus [Recovering/Resolving]
  - Urticaria [Recovering/Resolving]
  - Off label use [Recovered/Resolved]

NARRATIVE: CASE EVENT DATE: 20210424
